FAERS Safety Report 7088241-9 (Version None)
Quarter: 2010Q4

REPORT INFORMATION
  Report Type: 
  Country: None (occurrence: None)
  Receive Date: 20101108
  Receipt Date: 20101014
  Transmission Date: 20110411
  Serious: Yes (Hospitalization)
  Sender: FDA-Public Use
  Company Number: US-BAYER-201016082NA

PATIENT
  Age: 38 Year
  Sex: Female
  Weight: 100 kg

DRUGS (5)
  1. YAZ [Suspect]
     Indication: PRODUCT USED FOR UNKNOWN INDICATION
     Route: 048
  2. YASMIN [Suspect]
     Indication: PREMENSTRUAL SYNDROME
     Route: 048
     Dates: start: 19990101
  3. YASMIN [Suspect]
     Route: 048
     Dates: start: 20010101, end: 20040501
  4. MOTRIN [Concomitant]
     Indication: MYALGIA
  5. ADVIL [Concomitant]
     Indication: MYALGIA

REACTIONS (2)
  - INJURY [None]
  - PULMONARY EMBOLISM [None]
